FAERS Safety Report 6822208-8 (Version None)
Quarter: 2010Q3

REPORT INFORMATION
  Report Type: 
  Country: None (occurrence: None)
  Receive Date: 20100707
  Receipt Date: 20100707
  Transmission Date: 20110219
  Serious: Yes (Other)
  Sender: FDA-Public Use
  Company Number: None

PATIENT
  Age: 56 Year
  Sex: Male
  Weight: 83.9154 kg

DRUGS (2)
  1. TRICOR [Suspect]
     Indication: BLOOD CHOLESTEROL INCREASED
     Dosage: 1 PILL EVERY OTHER DAY PO
     Route: 048
     Dates: start: 20100601, end: 20100705
  2. TRICOR [Suspect]
     Indication: BLOOD TRIGLYCERIDES
     Dosage: 1 PILL EVERY OTHER DAY PO
     Route: 048
     Dates: start: 20100601, end: 20100705

REACTIONS (5)
  - AMNESIA [None]
  - ARRHYTHMIA [None]
  - BALANCE DISORDER [None]
  - NAUSEA [None]
  - VENTRICULAR FIBRILLATION [None]
